FAERS Safety Report 5009888-7 (Version None)
Quarter: 2006Q2

REPORT INFORMATION
  Report Type: 
  Country: None (occurrence: None)
  Receive Date: 20060522
  Receipt Date: 20060509
  Transmission Date: 20061013
  Serious: Yes (Other)
  Sender: FDA-Public Use
  Company Number: 2006050025

PATIENT
  Age: 22 Year
  Sex: Female

DRUGS (1)
  1. D-PENICILLAMINE [Suspect]
     Indication: SYSTEMIC SCLEROSIS

REACTIONS (12)
  - ANTINUCLEAR ANTIBODY POSITIVE [None]
  - C-REACTIVE PROTEIN INCREASED [None]
  - DRUG INEFFECTIVE [None]
  - ERYTHEMA [None]
  - GASTROINTESTINAL MOTILITY DISORDER [None]
  - HEPATITIS C ANTIBODY POSITIVE [None]
  - HEPATITIS C VIRUS [None]
  - IRON DEFICIENCY ANAEMIA [None]
  - OESOPHAGEAL DISORDER [None]
  - RED BLOOD CELL SEDIMENTATION RATE INCREASED [None]
  - SCLERODERMA [None]
  - SKIN NODULE [None]
